FAERS Safety Report 15505283 (Version 1)
Quarter: 2018Q4

REPORT INFORMATION
  Report Type: Spontaneous
  Country: US (occurrence: US)
  Receive Date: 20181010
  Receipt Date: 20181010
  Transmission Date: 20190205
  Serious: Yes (Hospitalization, Disabling, Other)
  Sender: FDA-Public Use
  Company Number: None

PATIENT
  Age: 41 Year
  Sex: Female

DRUGS (6)
  1. LORAZEPAM. [Concomitant]
     Active Substance: LORAZEPAM
  2. XARELTO [Concomitant]
     Active Substance: RIVAROXABAN
  3. NIFEDIPINE ER TABLET ER 24HR 90MG [Suspect]
     Active Substance: NIFEDIPINE
     Indication: HYPERTENSION
     Dosage: ?          QUANTITY:1 TABLET(S);?
     Route: 048
     Dates: start: 2018
  4. VITAMIN C [Concomitant]
     Active Substance: ASCORBIC ACID
  5. ATIVAN [Suspect]
     Active Substance: LORAZEPAM
  6. CLONIDINE. [Concomitant]
     Active Substance: CLONIDINE

REACTIONS (4)
  - Blood pressure inadequately controlled [None]
  - Cerebrovascular accident [None]
  - Drug ineffective [None]
  - Cerebral thrombosis [None]

NARRATIVE: CASE EVENT DATE: 20180701
